FAERS Safety Report 6942047-7 (Version None)
Quarter: 2010Q3

REPORT INFORMATION
  Report Type: 
  Country: None (occurrence: None)
  Receive Date: 20100826
  Receipt Date: 20100817
  Transmission Date: 20110219
  Serious: Yes (Hospitalization, Other)
  Sender: FDA-Public Use
  Company Number: JP-PFIZER INC-2008154831

PATIENT
  Age: 58 Year
  Sex: Male
  Weight: 68.4 kg

DRUGS (7)
  1. SUNITINIB MALATE [Suspect]
     Indication: RENAL CELL CARCINOMA
     Dosage: 50 MG, 1X/DAY
     Route: 048
     Dates: start: 20080709, end: 20081128
  2. DECADRON [Concomitant]
     Dosage: UNK
     Route: 048
  3. BLOPRESS [Concomitant]
     Indication: HYPERTENSION
     Dosage: UNK
     Route: 048
  4. ADALAT [Concomitant]
     Indication: HYPERTENSION
     Dosage: UNK
     Route: 048
  5. TRANEXAMIC ACID [Concomitant]
     Route: 048
     Dates: end: 20080712
  6. ADONA [Concomitant]
     Route: 048
     Dates: end: 20080712
  7. HYDANTOL [Concomitant]
     Route: 048
     Dates: end: 20080728

REACTIONS (3)
  - COLITIS ULCERATIVE [None]
  - DIARRHOEA [None]
  - HYPERTENSION [None]
